FAERS Safety Report 9820499 (Version 3)
Quarter: 2014Q1

REPORT INFORMATION
  Report Type: Spontaneous
  Country: US (occurrence: US)
  Receive Date: 20140116
  Receipt Date: 20140302
  Transmission Date: 20141002
  Serious: Yes (Life-Threatening, Hospitalization)
  Sender: FDA-Public Use
  Company Number: US-009507513-1401USA002890

PATIENT
  Age: 64 Year
  Sex: Male
  Weight: 158.28 kg

DRUGS (14)
  1. JANUMET XR [Suspect]
     Indication: TYPE 2 DIABETES MELLITUS
     Dosage: 50/1000 MG, UNK
     Route: 048
     Dates: start: 2009, end: 20131221
  2. PRINIVIL [Concomitant]
     Dosage: UNK
     Route: 048
     Dates: start: 20120220, end: 20131221
  3. LANREOTIDE ACETATE [Concomitant]
  4. LYRICA [Concomitant]
  5. ALBUTEROL [Concomitant]
  6. ADVAIR [Concomitant]
  7. HUMALOG [Concomitant]
  8. NORVASC [Concomitant]
  9. LANTUS [Concomitant]
  10. LOMOTIL (ATROPINE SULFATE (+) DIPHENOXYLATE HYDROCHLORIDE) [Concomitant]
  11. CLOZAPINE [Concomitant]
  12. REMERON [Concomitant]
     Route: 048
  13. PAXIL [Concomitant]
  14. REQUIP [Concomitant]

REACTIONS (2)
  - Dyspnoea [Recovered/Resolved]
  - Angioedema [Recovered/Resolved]
